FAERS Safety Report 4855303-3 (Version None)
Quarter: 2005Q4

REPORT INFORMATION
  Report Type: 
  Country: None (occurrence: None)
  Receive Date: 20051215
  Receipt Date: 20051005
  Transmission Date: 20060501
  Serious: Yes (Hospitalization)
  Sender: FDA-Public Use
  Company Number: US-MERCK-0510USA04529

PATIENT
  Age: 61 Year
  Sex: Male
  Weight: 89 kg

DRUGS (8)
  1. VIOXX [Suspect]
     Indication: RHEUMATOID ARTHRITIS
     Route: 048
     Dates: start: 20040713, end: 20040821
  2. PROTONIX [Concomitant]
     Route: 065
  3. LIPITOR [Concomitant]
     Route: 065
  4. NORVASC [Concomitant]
     Route: 065
  5. FUROSEMIDE [Concomitant]
     Route: 065
  6. ASPIRIN [Concomitant]
     Route: 065
  7. VITAMINS (UNSPECIFIED) [Concomitant]
     Route: 065
  8. METOPROLOL [Concomitant]
     Route: 065

REACTIONS (9)
  - ARTERIOSCLEROSIS [None]
  - CARDIOVASCULAR DISORDER [None]
  - CORONARY ARTERY DISEASE [None]
  - CORONARY ARTERY OCCLUSION [None]
  - DEPRESSION [None]
  - MYOCARDIAL INFARCTION [None]
  - STRESS [None]
  - VENTRICULAR DYSFUNCTION [None]
  - VENTRICULAR FIBRILLATION [None]
